FAERS Safety Report 12313275 (Version 1)
Quarter: 2016Q2

REPORT INFORMATION
  Report Type: Spontaneous
  Country: US (occurrence: US)
  Receive Date: 20160428
  Receipt Date: 20160428
  Transmission Date: 20160815
  Serious: No
  Sender: FDA-Public Use
  Company Number: US-PFIZER INC-2016224132

PATIENT
  Age: 55 Year
  Sex: Female

DRUGS (2)
  1. IBRANCE [Suspect]
     Active Substance: PALBOCICLIB
     Indication: METASTASES TO BONE MARROW
     Dosage: 125 MG, UNK
     Dates: start: 20160409
  2. FASLODEX [Suspect]
     Active Substance: FULVESTRANT
     Indication: METASTASES TO BONE MARROW
     Dosage: UNK
     Dates: start: 20160409

REACTIONS (3)
  - Diarrhoea [Recovering/Resolving]
  - Fatigue [Unknown]
  - Product use issue [Not Recovered/Not Resolved]

NARRATIVE: CASE EVENT DATE: 201604
